FAERS Safety Report 7341624-1 (Version None)
Quarter: 2011Q1

REPORT INFORMATION
  Report Type: 
  Country: None (occurrence: None)
  Receive Date: 20110228
  Receipt Date: 20110221
  Transmission Date: 20110831
  Serious: Yes (Hospitalization, Disabling)
  Sender: FDA-Public Use
  Company Number: OSCN-NO-0604S-0094

PATIENT
  Age: 55 Year
  Sex: Female

DRUGS (1)
  1. OMNISCAN [Suspect]
     Indication: PRODUCT USED FOR UNKNOWN INDICATION
     Dosage: 50 ML, SINGLE DOSE, I.V.
     Route: 042
     Dates: start: 20020114, end: 20020114

REACTIONS (12)
  - GRIP STRENGTH DECREASED [None]
  - POST PROCEDURAL COMPLICATION [None]
  - ABDOMINAL INFECTION [None]
  - NEPHROGENIC SYSTEMIC FIBROSIS [None]
  - SEPSIS [None]
  - CONTRAST MEDIA REACTION [None]
  - MULTI-ORGAN FAILURE [None]
  - ACTIVITIES OF DAILY LIVING IMPAIRED [None]
  - MOBILITY DECREASED [None]
  - ALOPECIA [None]
  - SKIN HYPERPIGMENTATION [None]
  - CHOLECYSTECTOMY [None]
